FAERS Safety Report 9905212 (Version 2)
Quarter: 2014Q1

REPORT INFORMATION
  Report Type: Spontaneous
  Country: US (occurrence: US)
  Receive Date: 20140218
  Receipt Date: 20140218
  Transmission Date: 20141002
  Serious: No
  Sender: FDA-Public Use
  Company Number: US-GILEAD-2012-0052994

PATIENT
  Sex: Female

DRUGS (5)
  1. LETAIRIS [Suspect]
     Indication: PULMONARY HYPERTENSION
     Dosage: 5 MG, UNK
     Route: 048
     Dates: start: 20100810
  2. LETAIRIS [Suspect]
     Indication: PULMONARY EMBOLISM
  3. TRACLEER [Concomitant]
  4. TYVASO [Suspect]
  5. COUMADIN [Suspect]

REACTIONS (2)
  - Haemoptysis [Unknown]
  - Throat irritation [Unknown]
